FAERS Safety Report 5056523-8 (Version None)
Quarter: 2006Q3

REPORT INFORMATION
  Report Type: 
  Country: None (occurrence: None)
  Receive Date: 20060720
  Receipt Date: 20060711
  Transmission Date: 20061208
  Serious: Yes (Other)
  Sender: FDA-Public Use
  Company Number: JP-ABBOTT-06P-087-0337873-00

PATIENT
  Sex: Male

DRUGS (3)
  1. AKINETON [Suspect]
     Indication: PARKINSONISM
     Route: 048
     Dates: start: 20020715, end: 20041227
  2. LITHIUM CARBONATE [Concomitant]
     Indication: BIPOLAR I DISORDER
     Route: 048
     Dates: start: 20020715, end: 20041227
  3. MAPROTILINE HYDROCHLORIDE [Concomitant]
     Indication: BIPOLAR I DISORDER
     Route: 048
     Dates: start: 20041224, end: 20041227

REACTIONS (1)
  - NEUROLEPTIC MALIGNANT SYNDROME [None]
